FAERS Safety Report 5682731-9 (Version None)
Quarter: 2008Q1

REPORT INFORMATION
  Report Type: 
  Country: None (occurrence: None)
  Receive Date: 20080326
  Receipt Date: 20080326
  Transmission Date: 20080703
  Serious: No
  Sender: FDA-Public Use
  Company Number: None

PATIENT
  Sex: Male
  Weight: 99.7913 kg

DRUGS (1)
  1. PROAIR HFA [Suspect]
     Indication: ASTHMA
     Dosage: 2PUFFS108 MCG 2'XS DAY PO
     Route: 048
     Dates: start: 20071010, end: 20080325

REACTIONS (1)
  - PHARMACEUTICAL PRODUCT COMPLAINT [None]
